FAERS Safety Report 9773122 (Version 2)
Quarter: 2013Q4

REPORT INFORMATION
  Report Type: Spontaneous
  Country: JP (occurrence: JP)
  Receive Date: 20131219
  Receipt Date: 20131219
  Transmission Date: 20140711
  Serious: Yes (Other)
  Sender: FDA-Public Use
  Company Number: JP-GILEAD-2013-0086933

PATIENT
  Sex: Male

DRUGS (1)
  1. HEPSERA [Suspect]
     Indication: CHRONIC HEPATITIS
     Dosage: 10MG PER DAY
     Route: 048

REACTIONS (2)
  - Muscle disorder [Unknown]
  - Fanconi syndrome acquired [Unknown]
